FAERS Safety Report 21022986 (Version 2)
Quarter: 2022Q2

REPORT INFORMATION
  Report Type: Spontaneous
  Country: US (occurrence: US)
  Receive Date: 20220629
  Receipt Date: 20220630
  Transmission Date: 20220721
  Serious: Yes (Other)
  Sender: FDA-Public Use
  Company Number: US-SA-2019SA096397

PATIENT
  Age: 15 Year
  Sex: Male

DRUGS (2)
  1. DILTIAZEM [Suspect]
     Active Substance: DILTIAZEM
     Indication: Anxiety
     Route: 065
  2. DILTIAZEM [Suspect]
     Active Substance: DILTIAZEM
     Indication: Depression

REACTIONS (1)
  - Intentional overdose [Unknown]
